FAERS Safety Report 13297330 (Version 1)
Quarter: 2017Q1

REPORT INFORMATION
  Report Type: Spontaneous
  Country: US (occurrence: US)
  Receive Date: 20170306
  Receipt Date: 20170306
  Transmission Date: 20170428
  Serious: Yes (Other)
  Sender: FDA-Public Use
  Company Number: US-GLAXOSMITHKLINE-US2017029844

PATIENT
  Age: 69 Year
  Sex: Female

DRUGS (2)
  1. VOLTAREN [Suspect]
     Active Substance: DICLOFENAC SODIUM
     Indication: DIABETIC NEUROPATHY
     Dosage: UNK
  2. VOLTAREN [Suspect]
     Active Substance: DICLOFENAC SODIUM
     Indication: MUSCULOSKELETAL CHEST PAIN

REACTIONS (15)
  - Tachycardia [Unknown]
  - Lung disorder [Recovered/Resolved]
  - Intervertebral disc protrusion [Unknown]
  - Off label use [Unknown]
  - Lung operation [Recovered/Resolved]
  - Malaise [Recovered/Resolved]
  - Gastrointestinal disorder [Recovered/Resolved]
  - Dyspnoea [Recovered/Resolved]
  - Diaphragmatic disorder [Recovered/Resolved]
  - Cardiac operation [Recovered/Resolved]
  - Diaphragmatic operation [Recovered/Resolved]
  - Hernia [Recovered/Resolved]
  - Therapeutic response unexpected [Unknown]
  - Vomiting [Recovered/Resolved]
  - Product use issue [Unknown]
